FAERS Safety Report 5525708-6 (Version None)
Quarter: 2007Q4

REPORT INFORMATION
  Report Type: 
  Country: None (occurrence: None)
  Receive Date: 20071126
  Receipt Date: 20071115
  Transmission Date: 20080405
  Serious: Yes (Hospitalization)
  Sender: FDA-Public Use
  Company Number: GB-ROCHE-531718

PATIENT
  Age: 42 Year
  Sex: Male

DRUGS (4)
  1. ORLISTAT [Suspect]
     Indication: INVESTIGATION
     Dosage: FORM REPORTED AS CHEWABLE TABLET.
     Route: 048
     Dates: start: 20071104, end: 20071108
  2. ORLISTAT [Suspect]
     Route: 048
     Dates: start: 20071024, end: 20071101
  3. PARACETAMOL [Concomitant]
  4. CO-CODAMOL [Concomitant]
     Dates: start: 20071108, end: 20071108

REACTIONS (2)
  - ABDOMINAL PAIN [None]
  - DIVERTICULITIS [None]
